FAERS Safety Report 9561072 (Version 1)
Quarter: 2013Q3

REPORT INFORMATION
  Report Type: Spontaneous
  Country: US (occurrence: None)
  Receive Date: 20130909
  Receipt Date: 20130909
  Transmission Date: 20140515
  Serious: Yes (Hospitalization)
  Sender: FDA-Public Use
  Company Number: 381464

PATIENT
  Age: 56 Year
  Sex: Male
  Weight: 76.6 kg

DRUGS (3)
  1. VICTOZA (LIRAGLUTIDE) SOLUTION FOR INJECTION, 6 MG/ML [Suspect]
     Indication: TYPE 2 DIABETES MELLITUS
     Route: 058
     Dates: start: 20121109, end: 201211
  2. METFORMIN (METFORMIN) [Concomitant]
  3. LANTUS (INSULIN GLARGINE) [Concomitant]

REACTIONS (2)
  - Pancreatitis [None]
  - Weight decreased [None]
